FAERS Safety Report 5412313-5 (Version None)
Quarter: 2007Q3

REPORT INFORMATION
  Report Type: 
  Country: None (occurrence: None)
  Receive Date: 20070713
  Receipt Date: 20070517
  Transmission Date: 20080115
  Serious: No
  Sender: FDA-Public Use
  Company Number: 2007SP001899

PATIENT
  Age: 55 Year
  Sex: Female
  Weight: 54.4316 kg

DRUGS (5)
  1. LUNESTA [Suspect]
     Indication: POOR QUALITY SLEEP
     Dosage: 3 MG;PRN;ORAL  2 MG;PRN;ORAL  6 MG;PRN;ORAL
     Route: 048
     Dates: start: 20070429
  2. LUNESTA [Suspect]
     Indication: POOR QUALITY SLEEP
     Dosage: 3 MG;PRN;ORAL  2 MG;PRN;ORAL  6 MG;PRN;ORAL
     Route: 048
     Dates: start: 20070429
  3. ADDERALL 10 [Concomitant]
  4. CLONAZEPAM [Concomitant]
  5. SEROQUEL [Concomitant]

REACTIONS (2)
  - FEELING OF BODY TEMPERATURE CHANGE [None]
  - INSOMNIA [None]
